FAERS Safety Report 4537006-8 (Version None)
Quarter: 2004Q4

REPORT INFORMATION
  Report Type: 
  Country: None (occurrence: None)
  Receive Date: 20041223
  Receipt Date: 20041216
  Transmission Date: 20050328
  Serious: Yes (Other)
  Sender: FDA-Public Use
  Company Number: FR-BRISTOL-MYERS SQUIBB COMPANY-12799615

PATIENT
  Age: 40 Year
  Sex: Female

DRUGS (3)
  1. REYATAZ [Suspect]
     Route: 048
     Dates: end: 20041213
  2. VIDEX [Suspect]
     Route: 048
     Dates: end: 20041213
  3. RETROVIR [Suspect]
     Dates: end: 20041213

REACTIONS (1)
  - TOXIC SKIN ERUPTION [None]
